FAERS Safety Report 13855684 (Version 8)
Quarter: 2022Q2

REPORT INFORMATION
  Report Type: Spontaneous
  Country: US (occurrence: US)
  Receive Date: 20170810
  Receipt Date: 20220425
  Transmission Date: 20220720
  Serious: Yes (Death, Hospitalization, Other)
  Sender: FDA-Public Use
  Company Number: US-VIFOR (INTERNATIONAL) INC.-VIT-2017-06833

PATIENT
  Age: 87 Year
  Sex: Female

DRUGS (16)
  1. VELTASSA [Suspect]
     Active Substance: PATIROMER
     Indication: Hyperkalaemia
     Route: 048
     Dates: start: 201705
  2. VELTASSA [Suspect]
     Active Substance: PATIROMER
     Route: 048
     Dates: start: 20170621
  3. VELTASSA [Suspect]
     Active Substance: PATIROMER
     Dosage: 2 PACKETS DAILY
     Route: 048
  4. CHOLECALCIFEROL [Concomitant]
     Active Substance: CHOLECALCIFEROL
  5. TRAMADOL HYDROCHLORIDE [Concomitant]
     Active Substance: TRAMADOL HYDROCHLORIDE
  6. INSULIN GLARGINE [Concomitant]
     Active Substance: INSULIN GLARGINE
  7. SENNOSIDES A AND B [Concomitant]
     Active Substance: SENNOSIDES A AND B
  8. VITAMINS [Concomitant]
     Active Substance: VITAMINS
  9. LASIX [Concomitant]
     Active Substance: FUROSEMIDE
  10. KIONEX [Concomitant]
     Active Substance: SODIUM POLYSTYRENE SULFONATE
  11. GABAPENTIN [Concomitant]
     Active Substance: GABAPENTIN
  12. DIGOXIN [Concomitant]
     Active Substance: DIGOXIN
  13. PANTOPRAZOLE SODIUM [Concomitant]
     Active Substance: PANTOPRAZOLE SODIUM
  14. KAYEXALATE [Concomitant]
     Active Substance: SODIUM POLYSTYRENE SULFONATE
  15. BIOTIN [Concomitant]
     Active Substance: BIOTIN
  16. COREG [Concomitant]
     Active Substance: CARVEDILOL

REACTIONS (10)
  - Death [Fatal]
  - Urinary tract infection staphylococcal [Unknown]
  - Postoperative wound infection [Unknown]
  - Hip fracture [Unknown]
  - Femur fracture [Unknown]
  - Fall [Unknown]
  - Drug intolerance [Unknown]
  - Blood potassium increased [Unknown]
  - Constipation [Recovering/Resolving]
  - Product preparation error [Unknown]

NARRATIVE: CASE EVENT DATE: 20170101
